FAERS Safety Report 7069383-0 (Version None)
Quarter: 2010Q4

REPORT INFORMATION
  Report Type: 
  Country: None (occurrence: None)
  Receive Date: 20101028
  Receipt Date: 20101018
  Transmission Date: 20110411
  Serious: Yes (Hospitalization)
  Sender: FDA-Public Use
  Company Number: BR-GENENTECH-304029

PATIENT
  Sex: Female
  Weight: 48 kg

DRUGS (10)
  1. RITUXIMAB [Suspect]
     Indication: RHEUMATOID ARTHRITIS
     Dosage: 1000 MG, Q15D
     Route: 042
     Dates: start: 20100101, end: 20100209
  2. RITUXIMAB [Suspect]
     Dosage: 1000 MG, Q15D
     Route: 042
     Dates: start: 20100902, end: 20100916
  3. PREDNISONE [Concomitant]
     Indication: PRODUCT USED FOR UNKNOWN INDICATION
     Dosage: 20 MG, UNK
  4. LOSARTAN [Concomitant]
     Indication: PRODUCT USED FOR UNKNOWN INDICATION
     Dosage: 100 MG, UNK
  5. FUROSEMIDE [Concomitant]
     Indication: PRODUCT USED FOR UNKNOWN INDICATION
     Dosage: 40 MG, BID
  6. ENALAPRIL MALEATE [Concomitant]
     Indication: PRODUCT USED FOR UNKNOWN INDICATION
     Dosage: 20 MG, UNK
  7. FLUOXETINE [Concomitant]
     Indication: PRODUCT USED FOR UNKNOWN INDICATION
     Dosage: 20 MG, UNK
  8. CIPROFIBRATE [Concomitant]
     Indication: PRODUCT USED FOR UNKNOWN INDICATION
     Dosage: 100 MG, UNK
  9. PARACETAMOL [Concomitant]
     Indication: PRODUCT USED FOR UNKNOWN INDICATION
     Dosage: 750 MG, UNK
  10. ALLEGRA [Concomitant]
     Indication: PREMEDICATION
     Dosage: 150 MG, UNK

REACTIONS (13)
  - ANAEMIA [None]
  - ARTHRALGIA [None]
  - BLOOD CHOLESTEROL INCREASED [None]
  - CONJUNCTIVITIS [None]
  - DIARRHOEA [None]
  - DRUG INEFFECTIVE [None]
  - EAR INFECTION [None]
  - FURUNCLE [None]
  - HYPERSENSITIVITY [None]
  - RENAL PAIN [None]
  - SEPSIS [None]
  - VOMITING [None]
  - WOUND [None]
